FAERS Safety Report 6794775-4 (Version None)
Quarter: 2010Q2

REPORT INFORMATION
  Report Type: 
  Country: None (occurrence: None)
  Receive Date: 20100625
  Receipt Date: 20100611
  Transmission Date: 20101027
  Serious: Yes (Death, Life-Threatening, Hospitalization, Other)
  Sender: FDA-Public Use
  Company Number: JP-PFIZER INC-2010067684

PATIENT
  Sex: Male
  Weight: 59.6 kg

DRUGS (11)
  1. AZULFIDINE [Suspect]
     Indication: RHEUMATOID ARTHRITIS
     Dosage: 500 MG, 2X/DAY
     Route: 048
     Dates: end: 20100519
  2. METHOTREXATE [Suspect]
     Indication: RHEUMATOID ARTHRITIS
     Dosage: 10 MG/DAY, 2X/WEEK
     Route: 048
     Dates: end: 20100519
  3. RISEDRONATE SODIUM HYDRATE [Concomitant]
     Indication: OSTEOPOROSIS
     Dosage: 1 TABLET/DAY, DAILY
     Route: 048
  4. MYSLEE [Concomitant]
     Indication: INSOMNIA
     Dosage: 5 MG, 1X/DAY
     Route: 048
  5. ONON [Concomitant]
     Indication: COUGH
     Dosage: 4 TABLET, 2X/DAY
     Route: 048
  6. PREDNISOLONE [Concomitant]
     Indication: RHEUMATOID ARTHRITIS
     Dosage: 1 TABLET/DAY, DAILY
     Route: 048
     Dates: start: 20010101
  7. TAKEPRON [Concomitant]
     Indication: GASTRIC ULCER
     Dosage: 1 TABLET/DAY, DAILY
     Route: 048
  8. LAFUTIDINE [Concomitant]
     Dosage: 10 MG/DAY, DAILY
     Route: 048
  9. ANTOBRON [Concomitant]
     Indication: COUGH
     Dosage: UNK
  10. RIMATIL [Concomitant]
     Indication: RHEUMATOID ARTHRITIS
     Dosage: UNK
     Dates: start: 20010101
  11. RHEUMATREX [Concomitant]
     Indication: RHEUMATOID ARTHRITIS
     Dosage: UNK
     Dates: start: 20010101

REACTIONS (7)
  - CONDITION AGGRAVATED [None]
  - DECREASED APPETITE [None]
  - INAPPROPRIATE SCHEDULE OF DRUG ADMINISTRATION [None]
  - MUCOUS MEMBRANE DISORDER [None]
  - ORAL CANDIDIASIS [None]
  - PANCYTOPENIA [None]
  - SEPSIS [None]
